FAERS Safety Report 7622731-2 (Version None)
Quarter: 2011Q3

REPORT INFORMATION
  Report Type: 
  Country: None (occurrence: None)
  Receive Date: 20110701
  Receipt Date: 20100722
  Transmission Date: 20111222
  Serious: Yes (Other)
  Sender: FDA-Public Use
  Company Number: 7012133

PATIENT
  Age: 36 Year
  Sex: Male

DRUGS (4)
  1. REBIF [Suspect]
     Indication: MULTIPLE SCLEROSIS
     Dosage: 44 MCG, 3 IN 1 WK, SUBCUTANEOUS
     Route: 058
     Dates: start: 20041013
  2. TRILEPTAL [Concomitant]
  3. NEURONTIN [Concomitant]
  4. BACLOFEN [Concomitant]

REACTIONS (5)
  - INJECTION SITE ERYTHEMA [None]
  - FEELING COLD [None]
  - INJECTION SITE INDURATION [None]
  - CHILLS [None]
  - MULTIPLE SCLEROSIS RELAPSE [None]
